FAERS Safety Report 18407327 (Version 5)
Quarter: 2021Q1

REPORT INFORMATION
  Report Type: Spontaneous
  Country: US (occurrence: US)
  Receive Date: 20201020
  Receipt Date: 20210216
  Transmission Date: 20210419
  Serious: Yes (Death, Other)
  Sender: FDA-Public Use
  Company Number: US-JNJFOC-20201017270

PATIENT
  Age: 55 Year
  Sex: Male
  Weight: 127.12 kg

DRUGS (11)
  1. SEROQUEL [Suspect]
     Active Substance: QUETIAPINE FUMARATE
     Indication: INSOMNIA
     Route: 065
  2. ASPRIN [Suspect]
     Active Substance: ASPIRIN
     Indication: PRODUCT USED FOR UNKNOWN INDICATION
     Route: 065
  3. INVEGA SUSTENNA [Suspect]
     Active Substance: PALIPERIDONE PALMITATE
     Indication: SCHIZOPHRENIA
     Route: 030
     Dates: start: 20200801
  4. INVEGA SUSTENNA [Suspect]
     Active Substance: PALIPERIDONE PALMITATE
  5. RISPERDAL [Suspect]
     Active Substance: RISPERIDONE
     Indication: PSYCHOTIC DISORDER
     Dosage: 1 AS REQUIRED
     Route: 065
  6. RAMIPRIL. [Suspect]
     Active Substance: RAMIPRIL
     Indication: PRODUCT USED FOR UNKNOWN INDICATION
     Route: 065
  7. RESTASIS [Concomitant]
     Active Substance: CYCLOSPORINE
     Indication: GLAUCOMA
  8. VERAPAMIL [Concomitant]
     Active Substance: VERAPAMIL HYDROCHLORIDE
     Indication: MYOCARDIAL INFARCTION
     Dates: start: 2006
  9. DEPAKOTE [Suspect]
     Active Substance: DIVALPROEX SODIUM
     Indication: SCHIZOPHRENIA
     Route: 065
  10. INVEGA SUSTENNA [Suspect]
     Active Substance: PALIPERIDONE PALMITATE
  11. GLUCOPHAGE [Concomitant]
     Active Substance: METFORMIN HYDROCHLORIDE
     Indication: DIABETES MELLITUS
     Dates: start: 2020

REACTIONS (25)
  - Prostate cancer [Unknown]
  - Insomnia [Unknown]
  - Myalgia [Unknown]
  - Pain [Unknown]
  - Tachycardia [Unknown]
  - Incoherent [Unknown]
  - Liver disorder [Unknown]
  - Hypnagogic hallucination [Unknown]
  - Cerebrovascular accident [Unknown]
  - Anxiety [Unknown]
  - Head discomfort [Unknown]
  - Meningitis [Unknown]
  - Glaucoma [Unknown]
  - Malignant melanoma [Unknown]
  - Pulmonary pain [Unknown]
  - Death [Fatal]
  - Myocardial infarction [Unknown]
  - Haematological malignancy [Unknown]
  - Diabetes mellitus [Unknown]
  - Gallbladder cancer [Unknown]
  - Seizure [Unknown]
  - Injection site reaction [Unknown]
  - Sleep apnoea syndrome [Unknown]
  - Inappropriate schedule of product administration [Unknown]
  - Inflammation [Unknown]

NARRATIVE: CASE EVENT DATE: 202010
